FAERS Safety Report 19215354 (Version 2)
Quarter: 2021Q2

REPORT INFORMATION
  Report Type: Spontaneous
  Country: JP (occurrence: JP)
  Receive Date: 20210504
  Receipt Date: 20210524
  Transmission Date: 20210717
  Serious: Yes (Death)
  Sender: FDA-Public Use
  Company Number: JP-JNJFOC-20210452123

PATIENT
  Age: 2 Year
  Sex: Female
  Weight: 7.5 kg

DRUGS (5)
  1. ONON [Concomitant]
     Active Substance: PRANLUKAST
     Indication: ASTHMA
     Route: 048
     Dates: start: 20191007
  2. OXYGEN. [Concomitant]
     Active Substance: OXYGEN
     Route: 055
     Dates: start: 20210316
  3. RESPIA [Concomitant]
     Active Substance: CAFFEINE
     Indication: APNOEIC ATTACK
     Route: 048
     Dates: start: 20180707
  4. OXYGEN. [Concomitant]
     Active Substance: OXYGEN
     Route: 055
     Dates: start: 20181218
  5. OPSUMIT [Suspect]
     Active Substance: MACITENTAN
     Indication: RIGHT-TO-LEFT CARDIAC SHUNT
     Route: 048
     Dates: start: 20200120

REACTIONS (3)
  - Product use issue [Unknown]
  - Off label use [Unknown]
  - Right-to-left cardiac shunt [Fatal]

NARRATIVE: CASE EVENT DATE: 20200120
